FAERS Safety Report 24839443 (Version 1)
Quarter: 2025Q1

REPORT INFORMATION
  Report Type: Spontaneous
  Country: KR (occurrence: KR)
  Receive Date: 20250114
  Receipt Date: 20250114
  Transmission Date: 20250409
  Serious: Yes (Hospitalization, Other)
  Sender: ORGANON
  Company Number: KR-ORGANON-O2501KOR001051

PATIENT
  Age: 69 Year
  Sex: Female
  Weight: 52 kg

DRUGS (12)
  1. ATORVASTATIN CALCIUM\EZETIMIBE [Suspect]
     Active Substance: ATORVASTATIN CALCIUM\EZETIMIBE
     Indication: Type IIa hyperlipidaemia
     Dosage: 1 DOSAGE FORM, QD (FILM COATED TABLET)
     Route: 048
     Dates: start: 20151021
  2. LEVOTHYROXINE SODIUM [Concomitant]
     Active Substance: LEVOTHYROXINE SODIUM
     Indication: Hypothyroidism
     Dosage: 0.05 MILLIGRAM, QD (UNCOATED TABLET)
     Route: 048
     Dates: start: 20120207
  3. METFORMIN HYDROCHLORIDE [Concomitant]
     Active Substance: METFORMIN HYDROCHLORIDE
     Indication: Diabetes mellitus
     Dosage: 500 MILLIGRAM, BID (0.5 DAYS)
     Route: 048
     Dates: start: 20150302
  4. INDAPAMIDE [Concomitant]
     Active Substance: INDAPAMIDE
     Indication: Essential hypertension
     Dosage: 1.5 MILLIGRAM, QD
     Route: 048
     Dates: start: 20140113
  5. CANDESARTAN CILEXETIL [Concomitant]
     Active Substance: CANDESARTAN CILEXETIL
     Indication: Essential hypertension
     Dosage: 16 MILLIGRAM, QD (UNCOATED TABLET)
     Route: 048
     Dates: start: 20120704
  6. BISOPROLOL FUMARATE [Concomitant]
     Active Substance: BISOPROLOL FUMARATE
     Indication: Essential hypertension
     Dosage: 5 MILLIGRAM, QD
     Route: 048
     Dates: start: 20130401
  7. NICERGOLINE [Concomitant]
     Active Substance: NICERGOLINE
     Indication: Peripheral arterial occlusive disease
     Dosage: 250 MILLIGRAM, BID (0.5 DAY) ( SUGAR-COATED TABLETS)
     Route: 048
     Dates: start: 20080514
  8. MAGNESIUM OXIDE [Concomitant]
     Active Substance: MAGNESIUM OXIDE
     Indication: Prophylaxis
     Dosage: 250 MILLIGRAM, BID (0.5 DAY) (UNCOATED TABLET)
     Route: 048
     Dates: start: 20120104
  9. CLOPIDOGREL BISULFATE [Concomitant]
     Active Substance: CLOPIDOGREL BISULFATE
     Indication: Prophylaxis
     Dosage: 75 MILLIGRAM, QD
     Route: 048
     Dates: start: 20120404
  10. ESOMEPRAZOLE MAGNESIUM [Concomitant]
     Active Substance: ESOMEPRAZOLE MAGNESIUM
     Indication: Prophylaxis
     Dosage: 20 MILLIGRAM, QD
     Route: 048
     Dates: start: 20121008
  11. SPIRONOLACTONE [Concomitant]
     Active Substance: SPIRONOLACTONE
     Indication: Prophylaxis
     Dosage: 12.5 MILLIGRAM, QD
     Route: 048
     Dates: start: 20150729
  12. ASPIRIN [Concomitant]
     Active Substance: ASPIRIN
     Indication: Prophylaxis
     Dosage: 100 MILLIGRAM, QD (ENTERIC FILM COATED TABLETS)
     Route: 048
     Dates: start: 20060714, end: 20160405

REACTIONS (1)
  - Cerebral infarction [Recovered/Resolved]

NARRATIVE: CASE EVENT DATE: 20160401
